FAERS Safety Report 14479907 (Version 14)
Quarter: 2020Q2

REPORT INFORMATION
  Report Type: Report from Study
  Country: CN (occurrence: CN)
  Receive Date: 20180202
  Receipt Date: 20200429
  Transmission Date: 20200713
  Serious: Yes (Hospitalization, Other)
  Sender: FDA-Public Use
  Company Number: CN-EISAI MEDICAL RESEARCH-EC-2018-035505

PATIENT
  Age: 60 Year
  Sex: Female
  Weight: 54 kg

DRUGS (18)
  1. AMINO ACID [Concomitant]
     Active Substance: AMINO ACIDS, SOURCE UNSPECIFIED
  2. SMETCA POWDER [Concomitant]
  3. LENVATINIB [Suspect]
     Active Substance: LENVATINIB
     Route: 048
     Dates: start: 20200204, end: 20200324
  4. MIXED SUGAR ELECTROLYTE [Concomitant]
  5. BAIXIN PICTURE [Concomitant]
  6. PANTOPRAZOLE [Concomitant]
     Active Substance: PANTOPRAZOLE
  7. ZUOKE [Concomitant]
     Active Substance: LEVOFLOXACIN
  8. REDUCED GLUTATHIONE [Concomitant]
  9. ACERTIL [Concomitant]
     Active Substance: PERINDOPRIL
  10. ALANYL GLUTAMINE [Concomitant]
     Active Substance: ALANYL GLUTAMINE
  11. APPRAZOLE [Concomitant]
  12. LENVATINIB [Suspect]
     Active Substance: LENVATINIB
     Route: 048
     Dates: start: 20171102, end: 20180428
  13. LENVATINIB [Suspect]
     Active Substance: LENVATINIB
     Route: 048
     Dates: start: 20190107, end: 20200120
  14. ADALAT [Concomitant]
     Active Substance: NIFEDIPINE
  15. LENVATINIB [Suspect]
     Active Substance: LENVATINIB
     Indication: THYROID CANCER
     Route: 048
     Dates: start: 20170919, end: 20171030
  16. LENVATINIB [Suspect]
     Active Substance: LENVATINIB
     Route: 048
     Dates: start: 20180502, end: 20190104
  17. MUCOSOLVAN [Concomitant]
     Active Substance: AMBROXOL HYDROCHLORIDE
  18. INDOPAMINE [Concomitant]

REACTIONS (4)
  - Upper respiratory tract infection [Recovered/Resolved]
  - Enteritis [Recovering/Resolving]
  - Gastrointestinal haemorrhage [Recovered/Resolved]
  - Pneumonia viral [Recovering/Resolving]

NARRATIVE: CASE EVENT DATE: 20180121
